FAERS Safety Report 25004595 (Version 1)
Quarter: 2025Q1

REPORT INFORMATION
  Report Type: Spontaneous
  Country: US (occurrence: US)
  Receive Date: 20250224
  Receipt Date: 20250224
  Transmission Date: 20250409
  Serious: Yes (Other)
  Sender: SANOFI AVENTIS
  Company Number: US-SA-2025SA053245

PATIENT
  Age: 76 Year
  Sex: Female
  Weight: 88.64 kg

DRUGS (1)
  1. DUPIXENT [Suspect]
     Active Substance: DUPILUMAB
     Indication: Dermatitis atopic
     Dosage: 300 MG QOW
     Dates: end: 202412

REACTIONS (2)
  - Spinal operation [Not Recovered/Not Resolved]
  - Eczema [Not Recovered/Not Resolved]
